FAERS Safety Report 11909678 (Version 1)
Quarter: 2016Q1

REPORT INFORMATION
  Report Type: Spontaneous
  Country: None (occurrence: None)
  Receive Date: 20160111
  Receipt Date: 20160111
  Transmission Date: 20160526
  Serious: Yes (Disabling)
  Sender: FDA-Public Use
  Company Number: None

PATIENT
  Age: 35 Year
  Sex: Female

DRUGS (1)
  1. LAMICTAL [Suspect]
     Active Substance: LAMOTRIGINE
     Dates: start: 20160104, end: 20160108

REACTIONS (2)
  - Sensitivity of teeth [None]
  - Toothache [None]

NARRATIVE: CASE EVENT DATE: 20160110
